FAERS Safety Report 5144935-3 (Version None)
Quarter: 2006Q4

REPORT INFORMATION
  Report Type: 
  Country: None (occurrence: None)
  Receive Date: 20061107
  Receipt Date: 20060824
  Transmission Date: 20070319
  Serious: Yes (Other)
  Sender: FDA-Public Use
  Company Number: US-AVENTIS-200617137US

PATIENT
  Sex: Female

DRUGS (11)
  1. KETEK [Suspect]
     Indication: SINUSITIS
     Dosage: DOSE: UNK
     Dates: start: 20060117
  2. DARVOCET [Concomitant]
     Dosage: DOSE: Q6H PRN
  3. FLEXERIL                           /00428402/ [Concomitant]
     Dosage: DOSE: 10MG TID
  4. RESTORIL                           /00393701/ [Concomitant]
  5. ZYMINE [Concomitant]
     Dosage: DOSE: UNK
  6. ZELNORM [Concomitant]
  7. PROPOXYPHENE HCL AND ACETAMINOPHEN [Concomitant]
     Dosage: DOSE: 100/650
  8. PIROXICAM [Concomitant]
  9. ORATUSS [Concomitant]
     Dosage: DOSE: UNK
  10. CYCLOBENZAPRINE HCL [Concomitant]
  11. TEMAZEPAM [Concomitant]

REACTIONS (13)
  - ALANINE AMINOTRANSFERASE INCREASED [None]
  - ASPARTATE AMINOTRANSFERASE INCREASED [None]
  - ASTHENIA [None]
  - BLOOD ALKALINE PHOSPHATASE INCREASED [None]
  - BLOOD GLUCOSE INCREASED [None]
  - COUGH [None]
  - DYSPNOEA [None]
  - HEPATIC ENZYME INCREASED [None]
  - HEPATIC STEATOSIS [None]
  - LUNG DISORDER [None]
  - MUSCULOSKELETAL CHEST PAIN [None]
  - PLEURAL EFFUSION [None]
  - WHITE BLOOD CELL COUNT INCREASED [None]
